FAERS Safety Report 17577784 (Version 1)
Quarter: 2020Q1

REPORT INFORMATION
  Report Type: Spontaneous
  Country: US (occurrence: US)
  Receive Date: 20200324
  Receipt Date: 20200324
  Transmission Date: 20200409
  Serious: No
  Sender: FDA-Public Use
  Company Number: US-GALDERMA-US19059566

PATIENT
  Sex: Female

DRUGS (2)
  1. CLOBETASOL PROPIONATE (CLOBETASOL PROPIONATE) SHAMPOO, 0.05% [Suspect]
     Active Substance: CLOBETASOL PROPIONATE
     Indication: FOLLICULITIS
     Dosage: 0.05%
     Route: 061
     Dates: end: 20190914
  2. UNSPECIFIED ANTIBIOTIC [Concomitant]
     Active Substance: UNSPECIFIED INGREDIENT
     Indication: FOLLICULITIS
     Route: 065

REACTIONS (4)
  - Hypoaesthesia [Unknown]
  - Product use in unapproved indication [Recovered/Resolved]
  - Headache [Recovered/Resolved]
  - Skin tightness [Unknown]
